FAERS Safety Report 8348085-4 (Version None)
Quarter: 2012Q2

REPORT INFORMATION
  Report Type: 
  Country: None (occurrence: None)
  Receive Date: 20120509
  Receipt Date: 20100706
  Transmission Date: 20120825
  Serious: No
  Sender: FDA-Public Use
  Company Number: US-TEVA-2010003656

PATIENT
  Sex: Male

DRUGS (5)
  1. SERTRALINE HYDROCHLORIDE [Concomitant]
     Dates: start: 20090101
  2. ZOCOR [Concomitant]
     Indication: BLOOD CHOLESTEROL INCREASED
     Dates: start: 20070101
  3. NUVIGIL [Suspect]
     Dosage: 300 MILLIGRAM;
     Route: 048
     Dates: start: 20100501
  4. NUVIGIL [Suspect]
     Indication: NARCOLEPSY
     Dosage: 250 MILLIGRAM;
     Route: 048
     Dates: start: 20100301, end: 20100501
  5. LAMICTAL [Concomitant]
     Dates: start: 20040101

REACTIONS (1)
  - DRUG INEFFECTIVE [None]
